FAERS Safety Report 7791710-7 (Version None)
Quarter: 2011Q4

REPORT INFORMATION
  Report Type: 
  Country: None (occurrence: None)
  Receive Date: 20111003
  Receipt Date: 20110921
  Transmission Date: 20120403
  Serious: Yes (Hospitalization, Other)
  Sender: FDA-Public Use
  Company Number: US-BAYER-2011-014881

PATIENT
  Age: 43 Year
  Sex: Female
  Weight: 49.887 kg

DRUGS (9)
  1. DROSPIRENONE AND ETHINYL ESTRADIOL [Suspect]
     Indication: MENSTRUATION IRREGULAR
  2. IBUPROFEN [Concomitant]
     Dosage: UNK UNK, PRN
  3. AZITHROMYCIN [Concomitant]
     Dosage: UNK UNK, PRN
  4. IBUPROFEN (ADVIL) [Concomitant]
  5. YASMIN [Suspect]
     Indication: CONTRACEPTION
     Dosage: UNK
     Dates: start: 20061001, end: 20090701
  6. CIPROFLOXACIN [Concomitant]
     Dosage: UNK UNK, PRN
  7. YASMIN [Suspect]
     Indication: MENSTRUATION IRREGULAR
  8. DROSPIRENONE AND ETHINYL ESTRADIOL [Suspect]
     Indication: CONTRACEPTION
     Dosage: UNK
     Dates: start: 20061001, end: 20090701
  9. MOTRIN [Concomitant]
     Dosage: UNK UNK, PRN

REACTIONS (3)
  - CHOLECYSTITIS CHRONIC [None]
  - PAIN [None]
  - CHOLECYSTECTOMY [None]
